FAERS Safety Report 8244686-2 (Version None)
Quarter: 2012Q1

REPORT INFORMATION
  Report Type: 
  Country: None (occurrence: None)
  Receive Date: 20120329
  Receipt Date: 20120306
  Transmission Date: 20120608
  Serious: No
  Sender: FDA-Public Use
  Company Number: US-MYLANLABS-2012S1001957

PATIENT
  Age: 52 Year
  Sex: Female
  Weight: 130.18 kg

DRUGS (2)
  1. FENTANYL-100 [Suspect]
     Indication: PAIN
     Dosage: CHANGED Q48
     Route: 062
     Dates: start: 20110818
  2. FENTANYL-100 [Suspect]
     Indication: MUSCULOSKELETAL PAIN
     Dosage: CHANGED Q48
     Route: 062
     Dates: start: 20110818

REACTIONS (3)
  - APPLICATION SITE HAEMATOMA [None]
  - APPLICATION SITE IRRITATION [None]
  - APPLICATION SITE PAPULES [None]
